FAERS Safety Report 9492479 (Version 1)
Quarter: 2013Q3

REPORT INFORMATION
  Report Type: Spontaneous
  Country: US (occurrence: US)
  Receive Date: 20130830
  Receipt Date: 20130830
  Transmission Date: 20140515
  Serious: Yes (Other)
  Sender: FDA-Public Use
  Company Number: US-TEVA-429317USA

PATIENT
  Age: 30 Year
  Sex: Female
  Weight: 102.15 kg

DRUGS (1)
  1. PARAGARD 380A [Suspect]
     Indication: CONTRACEPTION
     Route: 015
     Dates: start: 20130719, end: 20130820

REACTIONS (1)
  - Device dislocation [Recovered/Resolved]
